FAERS Safety Report 5905402-X (Version None)
Quarter: 2008Q4

REPORT INFORMATION
  Report Type: 
  Country: None (occurrence: None)
  Receive Date: 20081001
  Receipt Date: 20080919
  Transmission Date: 20090506
  Serious: Yes (Death)
  Sender: FDA-Public Use
  Company Number: US-PFIZER INC-2008080808

PATIENT

DRUGS (1)
  1. CHANTIX [Suspect]

REACTIONS (1)
  - DEATH [None]
